FAERS Safety Report 7120168-6 (Version None)
Quarter: 2010Q4

REPORT INFORMATION
  Report Type: 
  Country: None (occurrence: None)
  Receive Date: 20101123
  Receipt Date: 20101117
  Transmission Date: 20110411
  Serious: Yes (Other)
  Sender: FDA-Public Use
  Company Number: US-PFIZER INC-2009251454

PATIENT
  Sex: Male
  Weight: 82 kg

DRUGS (4)
  1. DETROL LA [Suspect]
     Indication: HYPERTONIC BLADDER
  2. TOVIAZ [Suspect]
     Indication: HYPERTONIC BLADDER
     Dosage: 8 MG, 1X/DAY
     Route: 048
     Dates: start: 20090701
  3. LIPITOR [Concomitant]
  4. METAGLIP [Concomitant]

REACTIONS (2)
  - DRUG INEFFECTIVE [None]
  - SURGERY [None]
